FAERS Safety Report 8764925 (Version 1)
Quarter: 2012Q4

REPORT INFORMATION
  Report Type: 
  Country: GB (occurrence: GB)
  Receive Date: 20120902
  Receipt Date: 20120902
  Transmission Date: 20130627
  Serious: Yes (Hospitalization)
  Sender: FDA-Public Use
  Company Number: GB-MYLANLABS-2012S1017270

PATIENT
  Age: 1 Hour
  Sex: Male

DRUGS (8)
  1. CITALOPRAM [Suspect]
     Route: 064
  2. CITALOPRAM [Suspect]
     Route: 064
  3. DIHYDROCODEINE [Suspect]
     Route: 064
  4. FLUOXETINE [Suspect]
     Route: 064
  5. OMEPRAZOLE [Suspect]
     Route: 064
  6. CHLORPROMAZINE [Suspect]
     Route: 064
  7. PROPRANOLOL [Suspect]
     Route: 064
  8. SEROQUEL [Suspect]
     Route: 064

REACTIONS (6)
  - Exposure during pregnancy [Unknown]
  - Drug withdrawal syndrome neonatal [Unknown]
  - Hypocalcaemia [Unknown]
  - Pneumothorax [Unknown]
  - Premature baby [Unknown]
  - Neonatal respiratory distress syndrome [Unknown]
